FAERS Safety Report 8208959 (Version 4)
Quarter: 2012Q4

REPORT INFORMATION
  Report Type: 
  Country: US (occurrence: US)
  Receive Date: 20111028
  Receipt Date: 20120928
  Transmission Date: 20130627
  Serious: Yes (Other)
  Sender: FDA-Public Use
  Company Number: PHEH2011US07377

PATIENT
  Sex: Male

DRUGS (1)
  1. AREDIA [Suspect]
     Indication: MULTIPLE MYELOMA
     Dosage: 90 mg, QMO
     Route: 042
     Dates: start: 199707

REACTIONS (21)
  - Tinnitus [Unknown]
  - Renal failure [Unknown]
  - Cardiac failure congestive [Unknown]
  - Mitral valve incompetence [Unknown]
  - Tricuspid valve incompetence [Unknown]
  - Pulmonary valve incompetence [Unknown]
  - Acquired diaphragmatic eventration [Unknown]
  - Osteolysis [Unknown]
  - Osteopenia [Unknown]
  - Ventricular hypokinesia [Unknown]
  - Chest pain [Unknown]
  - Arteriosclerosis [Unknown]
  - Foot deformity [Unknown]
  - Seborrhoeic keratosis [Unknown]
  - Folliculitis [Unknown]
  - Cholecystitis [Unknown]
  - Restrictive pulmonary disease [Unknown]
  - Pulmonary mass [Unknown]
  - Cholangitis [Unknown]
  - Inguinal hernia [Unknown]
  - Diarrhoea [Unknown]
